FAERS Safety Report 4476269-4 (Version None)
Quarter: 2004Q3

REPORT INFORMATION
  Report Type: 
  Country: None (occurrence: None)
  Receive Date: 20040923
  Receipt Date: 20040727
  Transmission Date: 20050211
  Serious: No
  Sender: FDA-Public Use
  Company Number: USA040773795

PATIENT
  Age: 68 Year
  Sex: Female
  Weight: 59 kg

DRUGS (6)
  1. FORTEO [Suspect]
     Dates: start: 20040701, end: 20040726
  2. TAGAMET [Concomitant]
  3. LIBRAX [Concomitant]
  4. LORAZEPAM [Concomitant]
  5. PHENOBARBITAL TAB [Concomitant]
  6. EXCEDRIN (MIGRAINE) [Concomitant]

REACTIONS (4)
  - DIZZINESS [None]
  - LIMB INJURY [None]
  - OEDEMA PERIPHERAL [None]
  - PAIN IN EXTREMITY [None]
